FAERS Safety Report 4546684-9 (Version None)
Quarter: 2005Q1

REPORT INFORMATION
  Report Type: 
  Country: None (occurrence: None)
  Receive Date: 20050105
  Receipt Date: 20041221
  Transmission Date: 20050727
  Serious: Yes (Death, Life-Threatening, Hospitalization)
  Sender: FDA-Public Use
  Company Number: 9539

PATIENT
  Age: 62 Year
  Sex: Male

DRUGS (6)
  1. IRINOTECAN [Suspect]
     Indication: COLORECTAL CANCER METASTATIC
     Dosage: IV
     Route: 042
     Dates: start: 20041103, end: 20041103
  2. FLUOROURACIL [Suspect]
     Indication: COLORECTAL CANCER METASTATIC
     Dosage: 2400 MG/M2 TOTAL IV
     Route: 042
     Dates: start: 20041103, end: 20041103
  3. FOLINIC ACID [Suspect]
     Indication: COLORECTAL CANCER METASTATIC
     Dosage: IV
     Route: 042
     Dates: start: 20041103, end: 20041103
  4. SERTRALINE HCL [Concomitant]
  5. IRBESARTAN [Concomitant]
  6. MORPHINE [Concomitant]

REACTIONS (3)
  - CONVULSION [None]
  - GASTROINTESTINAL HAEMORRHAGE [None]
  - MULTI-ORGAN FAILURE [None]
